FAERS Safety Report 4662672-6 (Version None)
Quarter: 2005Q2

REPORT INFORMATION
  Report Type: 
  Country: None (occurrence: None)
  Receive Date: 20050516
  Receipt Date: 20040426
  Transmission Date: 20051028
  Serious: Yes (Hospitalization, Other)
  Sender: FDA-Public Use
  Company Number: US-GLAXOSMITHKLINE-A0508446A

PATIENT
  Age: 39 Year
  Sex: Male

DRUGS (6)
  1. WELLBUTRIN [Suspect]
     Dosage: 150MG TWICE PER DAY
     Route: 048
     Dates: start: 20030401
  2. PEPCID [Concomitant]
  3. VICODIN [Concomitant]
  4. FLEXERIL [Concomitant]
  5. NASONEX [Concomitant]
  6. KLONOPIN [Concomitant]
     Dosage: 1MG TWICE PER DAY

REACTIONS (4)
  - AMNESIA [None]
  - CONVULSION [None]
  - LOSS OF CONSCIOUSNESS [None]
  - NIGHT SWEATS [None]
